FAERS Safety Report 5886409-8 (Version None)
Quarter: 2008Q3

REPORT INFORMATION
  Report Type: 
  Country: None (occurrence: None)
  Receive Date: 20080917
  Receipt Date: 20080908
  Transmission Date: 20090109
  Serious: Yes (Hospitalization, Other)
  Sender: FDA-Public Use
  Company Number: US-ABBOTT-08P-163-0475081-00

PATIENT
  Sex: Female

DRUGS (2)
  1. HUMIRA [Suspect]
     Indication: CROHN'S DISEASE
     Route: 050
     Dates: start: 20060101
  2. HUMIRA [Suspect]
     Route: 050
     Dates: start: 20080908

REACTIONS (8)
  - ANAEMIA [None]
  - CROHN'S DISEASE [None]
  - CYSTITIS [None]
  - HEADACHE [None]
  - PYREXIA [None]
  - SCAR [None]
  - SINUSITIS [None]
  - WHITE BLOOD CELL COUNT INCREASED [None]
